FAERS Safety Report 7804108-X (Version None)
Quarter: 2011Q4

REPORT INFORMATION
  Report Type: 
  Country: None (occurrence: None)
  Receive Date: 20111010
  Receipt Date: 20110930
  Transmission Date: 20120403
  Serious: Yes (Hospitalization)
  Sender: FDA-Public Use
  Company Number: US-ASTELLAS-2011US006472

PATIENT
  Age: 57 Year
  Sex: Female

DRUGS (5)
  1. MYCOPHENOLATE MOFETIL [Concomitant]
     Indication: RENAL AND PANCREAS TRANSPLANT
     Dosage: 250 MG, BID
     Route: 048
  2. PROGRAF [Suspect]
     Indication: PANCREAS TRANSPLANT
     Dosage: 1.5 MG, BID
     Route: 048
  3. PREDNISONE [Concomitant]
     Indication: RENAL AND PANCREAS TRANSPLANT
     Dosage: 5 MG, UID/QD
     Route: 048
  4. PROGRAF [Suspect]
     Indication: RENAL TRANSPLANT
     Dosage: 1 MG IN THE MORNING AND 1.5 MG IN THE EVENING
     Route: 048
  5. PROGRAF [Suspect]
     Dosage: 1 MG, BID
     Route: 048

REACTIONS (1)
  - CATATONIA [None]
